FAERS Safety Report 21451946 (Version 1)
Quarter: 2022Q4

REPORT INFORMATION
  Report Type: Spontaneous
  Country: US (occurrence: None)
  Receive Date: 20221012
  Receipt Date: 20221012
  Transmission Date: 20230113
  Serious: No
  Sender: FDA-Public Use
  Company Number: None

PATIENT
  Age: 32 Year
  Sex: Male
  Weight: 90 kg

DRUGS (1)
  1. NURTEC ODT [Suspect]
     Active Substance: RIMEGEPANT SULFATE
     Indication: Migraine
     Dosage: OTHER FREQUENCY : 1 TIME EVERY 48 HR;?
     Route: 060
     Dates: start: 20221010

REACTIONS (4)
  - Abdominal pain upper [None]
  - Gait disturbance [None]
  - Muscle spasms [None]
  - Dyspepsia [None]

NARRATIVE: CASE EVENT DATE: 20221012
